FAERS Safety Report 14116958 (Version 1)
Quarter: 2017Q4

REPORT INFORMATION
  Report Type: Spontaneous
  Country: CH (occurrence: CH)
  Receive Date: 20171023
  Receipt Date: 20171023
  Transmission Date: 20180321
  Serious: Yes (Hospitalization)
  Sender: FDA-Public Use
  Company Number: CH-PFIZER INC-2016044728

PATIENT
  Age: 38 Year
  Sex: Female

DRUGS (4)
  1. ZYPREXA [Suspect]
     Active Substance: OLANZAPINE
     Indication: SCHIZOPHRENIA
     Dosage: UNK
     Route: 048
     Dates: start: 2015, end: 201507
  2. TEMESTA (LORAZEPAM) [Suspect]
     Active Substance: LORAZEPAM
     Dosage: 0.5 MG, AS NEEDED
     Route: 048
     Dates: start: 2015
  3. ZYPREXA [Suspect]
     Active Substance: OLANZAPINE
     Dosage: UNK
     Dates: start: 2016
  4. TEMESTA (LORAZEPAM) [Suspect]
     Active Substance: LORAZEPAM
     Dosage: UNK
     Dates: start: 2016

REACTIONS (4)
  - Psychiatric decompensation [Unknown]
  - Agitation [Unknown]
  - Aggression [Unknown]
  - Anxiety [Unknown]
